FAERS Safety Report 6214894-0 (Version None)
Quarter: 2009Q2

REPORT INFORMATION
  Report Type: 
  Country: None (occurrence: None)
  Receive Date: 20090604
  Receipt Date: 20090528
  Transmission Date: 20091009
  Serious: Yes (Hospitalization)
  Sender: FDA-Public Use
  Company Number: JP-EISAI INC.-E2020-04461-CLI-JP

PATIENT
  Sex: Male
  Weight: 67.8 kg

DRUGS (8)
  1. ARICEPT [Suspect]
     Indication: DEMENTIA WITH LEWY BODIES
     Route: 048
     Dates: start: 20090109, end: 20090122
  2. ARICEPT [Suspect]
     Route: 048
     Dates: start: 20090123, end: 20090421
  3. ARICEPT [Suspect]
     Route: 048
     Dates: start: 20090507
  4. THYRADIN S [Concomitant]
     Indication: THYROIDITIS
     Dosage: 25 UG X1
     Route: 048
     Dates: end: 20090421
  5. THYRADIN S [Concomitant]
     Indication: HYPOTHYROIDISM
  6. SATOSALBE [Concomitant]
  7. ASTAT OINTMENT [Concomitant]
  8. CHONDRON [Concomitant]
     Indication: MEIGE'S SYNDROME

REACTIONS (1)
  - SMALL INTESTINE CARCINOMA [None]
